FAERS Safety Report 23351498 (Version 3)
Quarter: 2024Q1

REPORT INFORMATION
  Report Type: Spontaneous
  Country: JP (occurrence: JP)
  Receive Date: 20231229
  Receipt Date: 20240222
  Transmission Date: 20240410
  Serious: Yes (Death, Hospitalization, Other)
  Sender: FDA-Public Use
  Company Number: JP-TAKEDA-2023TJP017273

PATIENT
  Age: 7 Decade
  Sex: Female

DRUGS (4)
  1. ADCETRIS [Suspect]
     Active Substance: BRENTUXIMAB VEDOTIN
     Indication: Anaplastic large-cell lymphoma
     Dosage: 1.8 MILLIGRAM/KILOGRAM, Q3WEEKS
     Route: 041
     Dates: start: 20231206
  2. CYCLOPHOSPHAMIDE [Suspect]
     Active Substance: CYCLOPHOSPHAMIDE
     Indication: Anaplastic large-cell lymphoma
     Dosage: UNK
     Route: 065
     Dates: start: 20231206
  3. DOXORUBICIN HYDROCHLORIDE [Suspect]
     Active Substance: DOXORUBICIN HYDROCHLORIDE
     Indication: Anaplastic large-cell lymphoma
     Dosage: UNK
     Route: 065
     Dates: start: 20231206
  4. PREDNISOLONE [Suspect]
     Active Substance: PREDNISOLONE
     Indication: Anaplastic large-cell lymphoma
     Dosage: UNK
     Route: 065
     Dates: start: 20231206

REACTIONS (5)
  - Multiple organ dysfunction syndrome [Fatal]
  - Bedridden [Fatal]
  - Renal failure [Unknown]
  - Tumour lysis syndrome [Not Recovered/Not Resolved]
  - Cerebral infarction [Not Recovered/Not Resolved]
